FAERS Safety Report 18801522 (Version 1)
Quarter: 2021Q1

REPORT INFORMATION
  Report Type: Spontaneous
  Country: US (occurrence: US)
  Receive Date: 20210128
  Receipt Date: 20210128
  Transmission Date: 20210419
  Serious: Yes (Death, Hospitalization)
  Sender: FDA-Public Use
  Company Number: US-ELI_LILLY_AND_COMPANY-US202101010739

PATIENT
  Age: 75 Year
  Sex: Male

DRUGS (1)
  1. BAMLANIVIMAB 700MG [Suspect]
     Active Substance: BAMLANIVIMAB
     Indication: COVID-19
     Dosage: UNK UNK, SINGLE
     Dates: start: 20210119, end: 20210119

REACTIONS (4)
  - Death [Fatal]
  - Infusion related reaction [Unknown]
  - Arthralgia [Unknown]
  - Confusional state [Unknown]

NARRATIVE: CASE EVENT DATE: 20210119
